FAERS Safety Report 16028391 (Version 2)
Quarter: 2022Q1

REPORT INFORMATION
  Report Type: Report from Study
  Country: BR (occurrence: BR)
  Receive Date: 20190304
  Receipt Date: 20220228
  Transmission Date: 20220423
  Serious: Yes (Hospitalization)
  Sender: FDA-Public Use
  Company Number: BR-TEVA-2019-BR-1019785

PATIENT
  Age: 56 Year
  Sex: Female

DRUGS (3)
  1. DOXORUBICIN HYDROCHLORIDE [Suspect]
     Active Substance: DOXORUBICIN HYDROCHLORIDE
     Indication: Breast cancer female
     Dosage: PART OF AC-T REGIMEN; CUMULATIVE DOSE WAS 240 MG/M2
     Route: 065
  2. CYCLOPHOSPHAMIDE [Suspect]
     Active Substance: CYCLOPHOSPHAMIDE
     Indication: Breast cancer female
     Dosage: PART OF AC-T REGIMEN; CUMULATIVE DOSE WAS 240 MG/M2
     Route: 065
  3. PACLITAXEL [Suspect]
     Active Substance: PACLITAXEL
     Indication: Breast cancer female
     Dosage: PART OF AC-T REGIMEN; CUMULATIVE DOSE WAS 240 MG/M2
     Route: 065

REACTIONS (1)
  - Acute promyelocytic leukaemia [Unknown]
